FAERS Safety Report 5088557-1 (Version None)
Quarter: 2006Q3

REPORT INFORMATION
  Report Type: 
  Country: None (occurrence: None)
  Receive Date: 20060801
  Receipt Date: 20060330
  Transmission Date: 20061208
  Serious: Yes (Other)
  Sender: FDA-Public Use
  Company Number: OMPQ-PR-0603S-0206

PATIENT
  Age: 5 Month
  Sex: Male

DRUGS (1)
  1. OMNIPAQUE 140 [Suspect]
     Indication: ABSCESS NECK
     Dosage: 18 ML, SINGLE DOSE, I.V.
     Route: 042
     Dates: start: 20060327, end: 20060327

REACTIONS (1)
  - HYPERSENSITIVITY [None]
